FAERS Safety Report 12192067 (Version 1)
Quarter: 2016Q1

REPORT INFORMATION
  Report Type: Spontaneous
  Country: US (occurrence: US)
  Receive Date: 20160318
  Receipt Date: 20160318
  Transmission Date: 20160526
  Serious: No
  Sender: FDA-Public Use
  Company Number: PHEH2016US006141

PATIENT
  Sex: Female

DRUGS (3)
  1. ENTRESTO [Suspect]
     Active Substance: SACUBITRIL\VALSARTAN
     Indication: PRODUCT USED FOR UNKNOWN INDICATION
     Dosage: 50 MG, UNK
     Route: 065
     Dates: start: 20151029
  2. FUROSEMIDE. [Concomitant]
     Active Substance: FUROSEMIDE
     Indication: PRODUCT USED FOR UNKNOWN INDICATION
     Route: 065
  3. POTASSIUM SUPPLEMENTS [Concomitant]
     Indication: BLOOD POTASSIUM DECREASED
     Dosage: 1 DF, BID
     Route: 065

REACTIONS (6)
  - Ocular icterus [Unknown]
  - Dysuria [Unknown]
  - Ocular hyperaemia [Unknown]
  - Headache [Unknown]
  - Rash [Unknown]
  - Micturition urgency [Unknown]
